FAERS Safety Report 4559547-X (Version None)
Quarter: 2005Q1

REPORT INFORMATION
  Report Type: 
  Country: None (occurrence: None)
  Receive Date: 20050124
  Receipt Date: 20050112
  Transmission Date: 20050727
  Serious: Yes (Hospitalization)
  Sender: FDA-Public Use
  Company Number: F01200402505

PATIENT
  Age: 75 Year
  Sex: Female

DRUGS (2)
  1. FONDAPARINUX SODIUM [Suspect]
     Indication: ORTHOPEDIC PROCEDURE
     Dosage: 2.5MG PER DAY
     Route: 058
     Dates: start: 20040720
  2. FRAGMIN [Concomitant]
     Dosage: .2ML PER DAY
     Dates: start: 20040814, end: 20040814

REACTIONS (3)
  - HIP ARTHROPLASTY [None]
  - POSTOPERATIVE INFECTION [None]
  - STAPHYLOCOCCAL INFECTION [None]
